FAERS Safety Report 25902746 (Version 1)
Quarter: 2025Q4

REPORT INFORMATION
  Report Type: Spontaneous
  Country: EU (occurrence: EU)
  Receive Date: 20251009
  Receipt Date: 20251009
  Transmission Date: 20260117
  Serious: Yes (Hospitalization, Other)
  Sender: MYLAN
  Company Number: EU-BAXTER-2025BAX021458

PATIENT
  Age: 76 Year
  Sex: Female

DRUGS (20)
  1. DOXORUBICIN [Suspect]
     Active Substance: DOXORUBICIN
     Indication: Diffuse large B-cell lymphoma
     Dosage: UNK (R CHOP REGIMEN AT A REDUCED DOSE, SECOND SERIES OF R CHOP)
  2. DOXORUBICIN [Suspect]
     Active Substance: DOXORUBICIN
     Dosage: UNK (R CHOP REGIMEN AT A REDUCED DOSE, SECOND SERIES OF R CHOP)
     Route: 065
  3. DOXORUBICIN [Suspect]
     Active Substance: DOXORUBICIN
     Dosage: UNK (R CHOP REGIMEN AT A REDUCED DOSE, SECOND SERIES OF R CHOP)
     Route: 065
  4. DOXORUBICIN [Suspect]
     Active Substance: DOXORUBICIN
     Dosage: UNK (R CHOP REGIMEN AT A REDUCED DOSE, SECOND SERIES OF R CHOP)
  5. CYCLOPHOSPHAMIDE [Suspect]
     Active Substance: CYCLOPHOSPHAMIDE
     Indication: Diffuse large B-cell lymphoma
     Dosage: UNK (R CHOP REGIMEN AT A REDUCED DOSE, SECOND SERIES OF R CHOP)
  6. CYCLOPHOSPHAMIDE [Suspect]
     Active Substance: CYCLOPHOSPHAMIDE
     Dosage: UNK (R CHOP REGIMEN AT A REDUCED DOSE, SECOND SERIES OF R CHOP)
     Route: 065
  7. CYCLOPHOSPHAMIDE [Suspect]
     Active Substance: CYCLOPHOSPHAMIDE
     Dosage: UNK (R CHOP REGIMEN AT A REDUCED DOSE, SECOND SERIES OF R CHOP)
     Route: 065
  8. CYCLOPHOSPHAMIDE [Suspect]
     Active Substance: CYCLOPHOSPHAMIDE
     Dosage: UNK (R CHOP REGIMEN AT A REDUCED DOSE, SECOND SERIES OF R CHOP)
  9. RITUXIMAB [Suspect]
     Active Substance: RITUXIMAB
     Indication: Diffuse large B-cell lymphoma
     Dosage: UNK (R CHOP REGIMEN AT A REDUCED DOSE, SECOND SERIES OF R CHOP)
  10. RITUXIMAB [Suspect]
     Active Substance: RITUXIMAB
     Dosage: UNK (R CHOP REGIMEN AT A REDUCED DOSE, SECOND SERIES OF R CHOP)
     Route: 065
  11. RITUXIMAB [Suspect]
     Active Substance: RITUXIMAB
     Dosage: UNK (R CHOP REGIMEN AT A REDUCED DOSE, SECOND SERIES OF R CHOP)
     Route: 065
  12. RITUXIMAB [Suspect]
     Active Substance: RITUXIMAB
     Dosage: UNK (R CHOP REGIMEN AT A REDUCED DOSE, SECOND SERIES OF R CHOP)
  13. VINCRISTINE [Suspect]
     Active Substance: VINCRISTINE
     Indication: Diffuse large B-cell lymphoma
     Dosage: UNK (R CHOP REGIMEN AT A REDUCED DOSE, SECOND SERIES OF R CHOP)
  14. VINCRISTINE [Suspect]
     Active Substance: VINCRISTINE
     Dosage: UNK (R CHOP REGIMEN AT A REDUCED DOSE, SECOND SERIES OF R CHOP)
     Route: 065
  15. VINCRISTINE [Suspect]
     Active Substance: VINCRISTINE
     Dosage: UNK (R CHOP REGIMEN AT A REDUCED DOSE, SECOND SERIES OF R CHOP)
     Route: 065
  16. VINCRISTINE [Suspect]
     Active Substance: VINCRISTINE
     Dosage: UNK (R CHOP REGIMEN AT A REDUCED DOSE, SECOND SERIES OF R CHOP)
  17. PREDNISOLONE [Suspect]
     Active Substance: PREDNISOLONE
     Indication: Diffuse large B-cell lymphoma
     Dosage: UNK (R CHOP REGIMEN AT A REDUCED DOSE, SECOND SERIES OF R CHOP)
  18. PREDNISOLONE [Suspect]
     Active Substance: PREDNISOLONE
     Dosage: UNK (R CHOP REGIMEN AT A REDUCED DOSE, SECOND SERIES OF R CHOP)
     Route: 065
  19. PREDNISOLONE [Suspect]
     Active Substance: PREDNISOLONE
     Dosage: UNK (R CHOP REGIMEN AT A REDUCED DOSE, SECOND SERIES OF R CHOP)
     Route: 065
  20. PREDNISOLONE [Suspect]
     Active Substance: PREDNISOLONE
     Dosage: UNK (R CHOP REGIMEN AT A REDUCED DOSE, SECOND SERIES OF R CHOP)

REACTIONS (14)
  - Hypotension [Recovered/Resolved]
  - Mucosal ulceration [Recovered/Resolved]
  - Eosinophilia [Recovered/Resolved]
  - Dyspnoea [Recovered/Resolved]
  - Escherichia bacteraemia [Recovered/Resolved]
  - Strongyloidiasis [Recovered/Resolved]
  - Pyrexia [Recovered/Resolved]
  - Abdominal pain [Recovered/Resolved]
  - Diarrhoea [Recovered/Resolved]
  - Vomiting [Recovered/Resolved]
  - Sepsis [Recovered/Resolved]
  - Asthenia [Recovered/Resolved]
  - Condition aggravated [Recovered/Resolved]
  - Disease progression [Recovered/Resolved]
